FAERS Safety Report 7624403-7 (Version None)
Quarter: 2011Q3

REPORT INFORMATION
  Report Type: 
  Country: None (occurrence: None)
  Receive Date: 20110720
  Receipt Date: 20110713
  Transmission Date: 20111222
  Serious: Yes (Other)
  Sender: FDA-Public Use
  Company Number: US-PFIZER INC-2011136234

PATIENT
  Sex: Female
  Weight: 99.773 kg

DRUGS (5)
  1. NEURONTIN [Suspect]
  2. NEURONTIN [Suspect]
  3. NEURONTIN [Suspect]
     Indication: NEURALGIA
  4. PERCOCET [Concomitant]
     Dosage: UNK
  5. NEURONTIN [Suspect]
     Indication: NERVE INJURY
     Dosage: 300 MG, 2X/DAY
     Route: 048
     Dates: start: 20110201, end: 20110201

REACTIONS (5)
  - IMPAIRED DRIVING ABILITY [None]
  - DIZZINESS [None]
  - SOMNOLENCE [None]
  - HANGOVER [None]
  - IMPAIRED WORK ABILITY [None]
